FAERS Safety Report 15569570 (Version 3)
Quarter: 2019Q3

REPORT INFORMATION
  Report Type: Report from Study
  Country: AU (occurrence: AU)
  Receive Date: 20181031
  Receipt Date: 20190730
  Transmission Date: 20191004
  Serious: Yes (Hospitalization, Other)
  Sender: FDA-Public Use
  Company Number: AU-BRISTOL-MYERS SQUIBB COMPANY-BMS-2018-094879

PATIENT
  Age: 56 Year
  Sex: Female
  Weight: 60.8 kg

DRUGS (4)
  1. BLINDED IPILIMUMAB [Suspect]
     Active Substance: IPILIMUMAB
     Indication: MALIGNANT MELANOMA
     Dosage: UNK UNK, Q6WK
     Route: 042
     Dates: start: 20171207, end: 20180913
  2. PROBIOTIC                          /06395501/ [Concomitant]
     Active Substance: BIFIDOBACTERIUM ANIMALIS LACTIS
     Indication: PRODUCT USED FOR UNKNOWN INDICATION
     Dosage: 1 TAB, UNK
     Route: 065
     Dates: start: 20171130
  3. NIVOLUMAB [Suspect]
     Active Substance: NIVOLUMAB
     Indication: MALIGNANT MELANOMA
     Dosage: UNK, Q2WK
     Route: 042
     Dates: start: 20171207, end: 20180913
  4. BLINDED PLACEBO [Suspect]
     Active Substance: INVESTIGATIONAL PRODUCT
     Indication: MALIGNANT MELANOMA
     Dosage: UNK UNK, Q6WK
     Route: 042
     Dates: start: 20171207, end: 20180913

REACTIONS (1)
  - Immune-mediated enterocolitis [Recovered/Resolved]

NARRATIVE: CASE EVENT DATE: 20181009
